FAERS Safety Report 5996683-5 (Version None)
Quarter: 2008Q4

REPORT INFORMATION
  Report Type: 
  Country: None (occurrence: None)
  Receive Date: 20081212
  Receipt Date: 20081022
  Transmission Date: 20090506
  Serious: No
  Sender: FDA-Public Use
  Company Number: US-ABBOTT-08P-163-0483271-00

PATIENT
  Sex: Female

DRUGS (3)
  1. HUMIRA [Suspect]
     Indication: CROHN'S DISEASE
     Dosage: HUMIRA PRE-FILLED SYRINGE
     Route: 058
     Dates: start: 20080301, end: 20080301
  2. HUMIRA [Suspect]
     Dosage: HUMIRA PEN
     Route: 058
     Dates: start: 20080301, end: 20080501
  3. HUMIRA [Suspect]
     Dosage: HUMIRA PRE-FILLED SYRINGE
     Route: 058
     Dates: start: 20080501

REACTIONS (2)
  - THROAT IRRITATION [None]
  - URTICARIA [None]
